FAERS Safety Report 25911655 (Version 1)
Quarter: 2025Q4

REPORT INFORMATION
  Report Type: Spontaneous
  Country: US (occurrence: US)
  Receive Date: 20251013
  Receipt Date: 20251013
  Transmission Date: 20260117
  Serious: No
  Sender: GALDERMA
  Company Number: US-GALDERMA-US2025017764

PATIENT

DRUGS (2)
  1. SOOLANTRA [Suspect]
     Active Substance: IVERMECTIN
     Indication: Rosacea
     Dosage: 1 DOSAGE FORM, QD, APPLIED AT NIGHT
     Route: 061
     Dates: start: 20250908, end: 20250910
  2. SOOLANTRA [Suspect]
     Active Substance: IVERMECTIN
     Dosage: 1 DOSAGE FORM, QD, APPLIED AT NIGHT
     Route: 061
     Dates: start: 202509

REACTIONS (2)
  - Skin irritation [Recovered/Resolved]
  - Erythema [Recovered/Resolved]

NARRATIVE: CASE EVENT DATE: 20250908
